FAERS Safety Report 5160458-X (Version None)
Quarter: 2006Q4

REPORT INFORMATION
  Report Type: 
  Country: None (occurrence: None)
  Receive Date: 20061121
  Receipt Date: 20061108
  Transmission Date: 20070319
  Serious: Yes (Other)
  Sender: FDA-Public Use
  Company Number: 232354

PATIENT
  Age: 58 Year
  Sex: Male
  Weight: 104.3 kg

DRUGS (3)
  1. RAPTIVA [Suspect]
     Indication: PSORIASIS
     Dosage: 1.1 ML, 1/WEEK, SUBCUTANEOUS
     Route: 058
     Dates: start: 20060718, end: 20061017
  2. RHINOCORT [Concomitant]
  3. SYNTHROID [Concomitant]

REACTIONS (3)
  - HERPES ZOSTER OTICUS [None]
  - INFECTION [None]
  - LACERATION [None]
